FAERS Safety Report 19577860 (Version 1)
Quarter: 2021Q3

REPORT INFORMATION
  Report Type: Spontaneous
  Country: CA (occurrence: CA)
  Receive Date: 20210719
  Receipt Date: 20210719
  Transmission Date: 20211014
  Serious: Yes (Other)
  Sender: FDA-Public Use
  Company Number: CA-TAKEDA-2021TUS043653

PATIENT
  Age: 27 Year
  Sex: Male

DRUGS (1)
  1. HUMAN NORMAL IMMUNOGLOBULIN [Suspect]
     Active Substance: HUMAN IMMUNOGLOBULIN G
     Indication: SEPSIS
     Dosage: 60 GRAM
     Route: 042

REACTIONS (4)
  - Haemolysis [Unknown]
  - Coombs test positive [Unknown]
  - Anti A antibody positive [Unknown]
  - Haemoglobin decreased [Unknown]
